FAERS Safety Report 8218284-0 (Version None)
Quarter: 2012Q1

REPORT INFORMATION
  Report Type: 
  Country: None (occurrence: None)
  Receive Date: 20120305
  Receipt Date: 20111227
  Transmission Date: 20120608
  Serious: No
  Sender: FDA-Public Use
  Company Number: 1000026599

PATIENT
  Age: 67 Year
  Sex: Female

DRUGS (11)
  1. DALIRESP [Suspect]
     Indication: CHRONIC OBSTRUCTIVE PULMONARY DISEASE
     Dosage: 500 MCG (500 MCG, 1 IN 1 D), ORAL
     Route: 048
     Dates: start: 20111101
  2. CRESTOR [Suspect]
     Indication: BLOOD CHOLESTEROL INCREASED
     Dates: end: 20111201
  3. PAXIL [Concomitant]
  4. CELEBREX [Concomitant]
  5. OMEPRAZOLE [Concomitant]
  6. ASPIRIN [Concomitant]
  7. DOXAZOSIN (DOXAZOSIN) (DOXAZOSIN) [Concomitant]
  8. FISH OIL (FISH OIL) (FISH OIL) [Concomitant]
  9. LISINOPRIL [Concomitant]
  10. METFORMIN HCL [Concomitant]
  11. SIMVASTATIN [Concomitant]

REACTIONS (2)
  - ALOPECIA [None]
  - DRUG INTERACTION [None]
